FAERS Safety Report 7583123-8 (Version None)
Quarter: 2011Q2

REPORT INFORMATION
  Report Type: 
  Country: None (occurrence: None)
  Receive Date: 20110630
  Receipt Date: 20110110
  Transmission Date: 20111010
  Serious: Yes (Other)
  Sender: FDA-Public Use
  Company Number: US-ASTRAZENECA-2011SE01515

PATIENT
  Age: 45 Year
  Sex: Female

DRUGS (3)
  1. FASLODEX [Suspect]
     Indication: BREAST CANCER
     Route: 030
  2. ZOLADEX [Suspect]
     Indication: BREAST CANCER
     Route: 058
  3. AI [Concomitant]

REACTIONS (3)
  - DISEASE PROGRESSION [None]
  - FLUSHING [None]
  - PYREXIA [None]
